FAERS Safety Report 9190889 (Version 2)
Quarter: 2013Q2

REPORT INFORMATION
  Report Type: Report from Study
  Country: IE (occurrence: IE)
  Receive Date: 20130326
  Receipt Date: 20130528
  Transmission Date: 20140414
  Serious: Yes (Hospitalization)
  Sender: FDA-Public Use
  Company Number: IE-ASTRAZENECA-2013SE19303

PATIENT
  Age: 9 Month
  Sex: Male

DRUGS (3)
  1. SYNAGIS [Suspect]
     Route: 030
     Dates: start: 20121019, end: 20121019
  2. VIT D [Concomitant]
  3. IRON [Concomitant]

REACTIONS (2)
  - Body temperature increased [Unknown]
  - Hypophagia [Unknown]
